FAERS Safety Report 13088663 (Version 2)
Quarter: 2017Q1

REPORT INFORMATION
  Report Type: Spontaneous
  Country: FR (occurrence: FR)
  Receive Date: 20170105
  Receipt Date: 20170209
  Transmission Date: 20170428
  Serious: Yes (Death)
  Sender: FDA-Public Use
  Company Number: FR-009507513-1612FRA014864

PATIENT
  Age: 26 Year
  Sex: Male

DRUGS (3)
  1. ISENTRESS [Suspect]
     Active Substance: RALTEGRAVIR POTASSIUM
     Indication: HIV INFECTION
     Dosage: 400 MG (1 FILM-COATED TABLET), 2 QD
     Route: 048
     Dates: start: 20140915
  2. UVEDOSE [Concomitant]
     Active Substance: CHOLECALCIFEROL
     Dosage: 1 AMPULE EVERY 3 MONTHS
     Route: 065
  3. KIVEXA [Suspect]
     Active Substance: ABACAVIR SULFATE\LAMIVUDINE
     Indication: HIV INFECTION
     Dosage: 1 FILM-COATED TABLET, QD
     Route: 048
     Dates: start: 20140915

REACTIONS (1)
  - Dissociative amnesia [Fatal]

NARRATIVE: CASE EVENT DATE: 20161107
